FAERS Safety Report 22758746 (Version 4)
Quarter: 2023Q4

REPORT INFORMATION
  Report Type: Report from Study
  Country: TR (occurrence: TR)
  Receive Date: 20230728
  Receipt Date: 20231122
  Transmission Date: 20240110
  Serious: Yes (Hospitalization)
  Sender: FDA-Public Use
  Company Number: TR-JNJFOC-20230720130

PATIENT
  Age: 39 Year
  Sex: Male

DRUGS (10)
  1. EPOPROSTENOL SODIUM [Suspect]
     Active Substance: EPOPROSTENOL SODIUM
     Indication: Product used for unknown indication
     Route: 042
  2. COUMADIN [Concomitant]
     Active Substance: WARFARIN SODIUM
  3. OXYGEN [Concomitant]
     Active Substance: OXYGEN
  4. PANTOPRAZOLE SODIUM [Concomitant]
     Active Substance: PANTOPRAZOLE SODIUM
  5. LEVOTHYROXINE SODIUM [Concomitant]
     Active Substance: LEVOTHYROXINE SODIUM
  6. TRACLEER [Concomitant]
     Active Substance: BOSENTAN
  7. REVATIO [Concomitant]
     Active Substance: SILDENAFIL CITRATE
  8. WARFMADIN [Concomitant]
  9. METOPROLOL TARTRATE [Concomitant]
     Active Substance: METOPROLOL TARTRATE
  10. FUROSEMIDE [Concomitant]
     Active Substance: FUROSEMIDE
     Dosage: 2 DAYS IN A WEEK 1X1

REACTIONS (6)
  - Device related infection [Unknown]
  - Thrombosis [Unknown]
  - Device issue [Unknown]
  - Device dislocation [Unknown]
  - Product administration interrupted [Unknown]
  - Rash [Recovered/Resolved]

NARRATIVE: CASE EVENT DATE: 20230701
